FAERS Safety Report 24946332 (Version 1)
Quarter: 2025Q1

REPORT INFORMATION
  Report Type: Spontaneous
  Country: US (occurrence: US)
  Receive Date: 20250210
  Receipt Date: 20250210
  Transmission Date: 20250409
  Serious: Yes (Death, Other)
  Sender: ASTELLAS
  Company Number: US-ASTELLAS-2025-AER-007977

PATIENT
  Age: 70 Year
  Sex: Male

DRUGS (11)
  1. PROGRAF [Suspect]
     Active Substance: TACROLIMUS
     Indication: Lung transplant
     Route: 065
  2. PROGRAF [Suspect]
     Active Substance: TACROLIMUS
     Route: 065
  3. PROGRAF [Suspect]
     Active Substance: TACROLIMUS
     Route: 065
  4. RAPAMUNE [Suspect]
     Active Substance: SIROLIMUS
     Indication: Lung transplant
     Route: 065
  5. RAPAMUNE [Suspect]
     Active Substance: SIROLIMUS
     Route: 065
  6. NULOJIX [Concomitant]
     Active Substance: BELATACEPT
     Indication: Lung transplant
     Dosage: FOR 6 DOSES
     Route: 065
  7. NULOJIX [Concomitant]
     Active Substance: BELATACEPT
     Dosage: FOR 6 DOSES
     Route: 065
  8. PREDNISONE [Concomitant]
     Active Substance: PREDNISONE
     Indication: Lung transplant
     Route: 065
  9. PREDNISONE [Concomitant]
     Active Substance: PREDNISONE
     Route: 065
  10. CELLCEPT [Concomitant]
     Active Substance: MYCOPHENOLATE MOFETIL
     Indication: Lung transplant
     Route: 065
  11. IMURAN [Concomitant]
     Active Substance: AZATHIOPRINE
     Indication: Lung transplant
     Route: 065

REACTIONS (8)
  - Post transplant lymphoproliferative disorder [Fatal]
  - Cytomegalovirus colitis [Unknown]
  - Oesophageal candidiasis [Unknown]
  - Pneumonia bacterial [Unknown]
  - Bacteraemia [Unknown]
  - Leukopenia [Unknown]
  - Nephropathy toxic [Unknown]
  - Toxicity to various agents [Unknown]
